FAERS Safety Report 15774031 (Version 4)
Quarter: 2022Q4

REPORT INFORMATION
  Report Type: Spontaneous
  Country: JP (occurrence: JP)
  Receive Date: 20181229
  Receipt Date: 20221208
  Transmission Date: 20230112
  Serious: Yes (Death, Hospitalization, Other)
  Sender: FDA-Public Use
  Company Number: JP-ASTELLAS-2018US044819

PATIENT
  Age: 71 Year
  Sex: Female

DRUGS (4)
  1. BENDAMUSTINE HYDROCHLORIDE [Suspect]
     Active Substance: BENDAMUSTINE HYDROCHLORIDE
     Indication: Waldenstrom^s macroglobulinaemia
     Dosage: 120 MG/M2/DAY, CYCLIC
     Route: 041
     Dates: start: 20170321
  2. BENDAMUSTINE HYDROCHLORIDE [Suspect]
     Active Substance: BENDAMUSTINE HYDROCHLORIDE
     Dosage: 90 MG/M2/DAY, CYCLIC
     Route: 041
     Dates: start: 20170607, end: 20170831
  3. RITUXIMAB [Suspect]
     Active Substance: RITUXIMAB
     Indication: Waldenstrom^s macroglobulinaemia
     Dosage: 375 MG/M2/DAY, CYCLIC
     Route: 041
     Dates: start: 20170607
  4. RITUXIMAB [Suspect]
     Active Substance: RITUXIMAB
     Dosage: 375 MG/M2/DAY, CYCLIC
     Route: 041
     Dates: start: 20170831

REACTIONS (10)
  - Encephalitis cytomegalovirus [Fatal]
  - Hepatic function abnormal [Unknown]
  - Electrolyte imbalance [Unknown]
  - Hypercalcaemia [Unknown]
  - Hyperammonaemia [Unknown]
  - Cytomegalovirus enterocolitis [Recovered/Resolved]
  - Cytomegalovirus chorioretinitis [Recovering/Resolving]
  - VIth nerve paralysis [Recovering/Resolving]
  - Retinal detachment [Unknown]
  - Product use in unapproved indication [Unknown]

NARRATIVE: CASE EVENT DATE: 20171018
